FAERS Safety Report 9998102 (Version 4)
Quarter: 2014Q2

REPORT INFORMATION
  Report Type: Report from Study
  Country: US (occurrence: US)
  Receive Date: 20140311
  Receipt Date: 20140611
  Transmission Date: 20141212
  Serious: No
  Sender: FDA-Public Use
  Company Number: US-SA-2013SA117710

PATIENT
  Age: 80 Year
  Sex: Female

DRUGS (1)
  1. AUBAGIO [Suspect]
     Indication: MULTIPLE SCLEROSIS
     Route: 048
     Dates: start: 20131108

REACTIONS (5)
  - Disability [Recovering/Resolving]
  - Abasia [Recovering/Resolving]
  - Muscular weakness [Unknown]
  - Nausea [Recovered/Resolved]
  - Multiple sclerosis relapse [Recovering/Resolving]
